FAERS Safety Report 18047250 (Version 2)
Quarter: 2020Q4

REPORT INFORMATION
  Report Type: Report from Study
  Country: None (occurrence: US)
  Receive Date: 20200720
  Receipt Date: 20201119
  Transmission Date: 20210113
  Serious: No
  Sender: FDA-Public Use
  Company Number: US-ABBVIE-20K-163-3489466-00

PATIENT
  Sex: Female

DRUGS (1)
  1. CREON [Suspect]
     Active Substance: PANCRELIPASE AMYLASE\PANCRELIPASE LIPASE\PANCRELIPASE PROTEASE
     Indication: PRODUCT USED FOR UNKNOWN INDICATION
     Dosage: 2 WITH LUNCH AND DINNER, DAILY
     Route: 048
     Dates: start: 2014

REACTIONS (2)
  - Anal incontinence [Unknown]
  - Abdominal discomfort [Unknown]
